FAERS Safety Report 17906906 (Version 1)
Quarter: 2020Q2

REPORT INFORMATION
  Report Type: Report from Study
  Country: None (occurrence: CA)
  Receive Date: 20200616
  Receipt Date: 20200616
  Transmission Date: 20200714
  Serious: Yes (Other)
  Sender: FDA-Public Use
  Company Number: CA-ABBVIE-20K-028-3446461-00

PATIENT
  Sex: Male

DRUGS (1)
  1. HUMIRA [Suspect]
     Active Substance: ADALIMUMAB
     Indication: CROHN^S DISEASE
     Route: 058
     Dates: start: 20200224

REACTIONS (9)
  - Post procedural discharge [Unknown]
  - Anal fistula [Not Recovered/Not Resolved]
  - Diarrhoea [Unknown]
  - Bile acid malabsorption [Not Recovered/Not Resolved]
  - Intestinal perforation [Recovered/Resolved]
  - Intestinal anastomosis [Not Recovered/Not Resolved]
  - Postoperative abscess [Unknown]
  - Deep vein thrombosis postoperative [Unknown]
  - Post procedural pulmonary embolism [Unknown]

NARRATIVE: CASE EVENT DATE: 2020
